FAERS Safety Report 17234730 (Version 1)
Quarter: 2020Q1

REPORT INFORMATION
  Report Type: Spontaneous
  Country: US (occurrence: US)
  Receive Date: 20200106
  Receipt Date: 20200106
  Transmission Date: 20200409
  Serious: No
  Sender: FDA-Public Use
  Company Number: US-UCBSA-2015000358

PATIENT
  Sex: Female

DRUGS (1)
  1. CIMZIA [Suspect]
     Active Substance: CERTOLIZUMAB PEGOL
     Indication: CROHN^S DISEASE
     Dosage: 600 MG, EV 4 WEEKS: (400MG EVERY 4 WEEKS AND 200 MG EVERY ALTERNATE 2 WEEKS ADDITIONALLY)

REACTIONS (1)
  - No adverse event [Unknown]
